FAERS Safety Report 5086083-7 (Version None)
Quarter: 2006Q3

REPORT INFORMATION
  Report Type: 
  Country: None (occurrence: None)
  Receive Date: 20060817
  Receipt Date: 20060809
  Transmission Date: 20061208
  Serious: Yes (Death)
  Sender: FDA-Public Use
  Company Number: HQWYE789914FEB06

PATIENT
  Age: 76 Year
  Sex: Male

DRUGS (1)
  1. MYLOTARG [Suspect]
     Indication: ACUTE MYELOID LEUKAEMIA
     Dosage: A SINGLE 9MG/M^2 DOSE INTRAVENOUS DRIP
     Route: 041
     Dates: start: 20051017, end: 20051017

REACTIONS (2)
  - PNEUMONIA STAPHYLOCOCCAL [None]
  - SUBDURAL HAEMATOMA [None]
